FAERS Safety Report 4579507-2 (Version None)
Quarter: 2005Q1

REPORT INFORMATION
  Report Type: 
  Country: None (occurrence: None)
  Receive Date: 20050209
  Receipt Date: 20050203
  Transmission Date: 20050727
  Serious: Yes (Hospitalization)
  Sender: FDA-Public Use
  Company Number: A044-002-005443

PATIENT
  Age: 83 Year
  Sex: Female

DRUGS (8)
  1. ARICEPT [Suspect]
     Indication: DEMENTIA ALZHEIMER'S TYPE
     Dosage: 10 MG, 1 IN 1 D, ORAL,FOR SEVERAL YEARS
     Route: 048
     Dates: end: 20041117
  2. TRAMADOL HCL [Suspect]
     Dosage: 200 MG, 2 DF, ORAL
     Route: 048
     Dates: start: 20041109, end: 20041114
  3. CITALOPRAM HYDROBROMIDE [Suspect]
     Dosage: 20 MG, 1 DF, ORAL,FOR SEVERAL YEARS
     Route: 048
     Dates: end: 20041114
  4. FENOFIBRATE [Suspect]
     Dosage: 160 MG, 1 DF, ORAL FOR SEVERAL YEARS
     Route: 048
     Dates: end: 20041114
  5. ALENDRONATE (ALENDRONATE SODIUM) [Suspect]
     Dosage: 70 MG PER WEEK, 1 DF, ORAL,,FOR SEVERAL YEARS
     Route: 048
     Dates: end: 20041114
  6. LISINOPRIL AND HYDROCHLOROTHIAZIDE [Suspect]
     Dosage: 20 MG/12.5 MG, 1 DF, ORAL, FOR SEVERAL YEARS
     Route: 048
     Dates: end: 20041114
  7. ACETAMINOPHEN [Concomitant]
  8. CELIPROLOL (CELIPROLOL) [Concomitant]

REACTIONS (14)
  - CEREBRAL ATROPHY [None]
  - CONTUSION [None]
  - CONVULSION [None]
  - DEMENTIA ALZHEIMER'S TYPE [None]
  - DISINHIBITION [None]
  - DRUG INTERACTION [None]
  - EXTRAPYRAMIDAL DISORDER [None]
  - EYELID PTOSIS [None]
  - HALLUCINATION, AUDITORY [None]
  - HALLUCINATION, VISUAL [None]
  - HYPONATRAEMIA [None]
  - LOSS OF CONSCIOUSNESS [None]
  - MIOSIS [None]
  - SOMNOLENCE [None]
